FAERS Safety Report 9746700 (Version 2)
Quarter: 2014Q1

REPORT INFORMATION
  Report Type: Spontaneous
  Country: US (occurrence: US)
  Receive Date: 20131211
  Receipt Date: 20140218
  Transmission Date: 20141002
  Serious: Yes (Hospitalization)
  Sender: FDA-Public Use
  Company Number: US-BAYER-2013-151120

PATIENT
  Age: 29 Year
  Sex: Female
  Weight: 68.03 kg

DRUGS (1)
  1. MIRENA [Suspect]
     Indication: CONTRACEPTION
     Dosage: 20 MCG/24HR, CONT
     Route: 015
     Dates: start: 201005, end: 20111107

REACTIONS (20)
  - Uterine perforation [None]
  - Genital haemorrhage [None]
  - Abortion spontaneous [None]
  - Vaginal haemorrhage [None]
  - Pregnancy with contraceptive device [None]
  - Depression [None]
  - Activities of daily living impaired [None]
  - Scar [None]
  - Emotional distress [None]
  - Abdominal pain [None]
  - Injury [None]
  - Device dislocation [None]
  - Abdominal pain upper [None]
  - Paraesthesia [None]
  - Mental disorder [None]
  - Anxiety [None]
  - Depressed mood [None]
  - Drug ineffective [None]
  - Fear [None]
  - Abdominal discomfort [None]
